FAERS Safety Report 8399955-2 (Version None)
Quarter: 2012Q2

REPORT INFORMATION
  Report Type: 
  Country: None (occurrence: None)
  Receive Date: 20120531
  Receipt Date: 20120522
  Transmission Date: 20120825
  Serious: Yes (Hospitalization)
  Sender: FDA-Public Use
  Company Number: US-ABBOTT-12P-163-0925926-00

PATIENT
  Sex: Male
  Weight: 73.548 kg

DRUGS (11)
  1. ASPIRIN [Concomitant]
  2. CETIRIZINE HYDROCHLORIDE [Concomitant]
     Indication: PRODUCT USED FOR UNKNOWN INDICATION
     Dosage: DAILY
  3. HUMIRA [Suspect]
     Indication: PSORIASIS
     Dates: start: 20090601
  4. VITAMIN C [Concomitant]
     Indication: PRODUCT USED FOR UNKNOWN INDICATION
  5. LIPITOR [Concomitant]
     Indication: PRODUCT USED FOR UNKNOWN INDICATION
     Dosage: DAILY
  6. LISINOPRIL AND HYDROCHLOROTHIAZIDE [Concomitant]
     Indication: PRODUCT USED FOR UNKNOWN INDICATION
     Dosage: 20/12.5MG 1/2 TABLET DAILY
  7. HUMIRA [Suspect]
     Dates: start: 20120416
  8. ASPIRIN [Concomitant]
     Indication: PRODUCT USED FOR UNKNOWN INDICATION
  9. METOPROLOL TARTRATE [Concomitant]
     Indication: PRODUCT USED FOR UNKNOWN INDICATION
     Dosage: 1- 50MG BID
  10. HUMIRA [Suspect]
     Dates: start: 20120323
  11. FAMOTIDINE [Concomitant]
     Indication: PRODUCT USED FOR UNKNOWN INDICATION

REACTIONS (4)
  - DRUG INEFFECTIVE [None]
  - HEART RATE DECREASED [None]
  - PSORIASIS [None]
  - DRUG EFFECT DECREASED [None]
